FAERS Safety Report 7564577-X (Version None)
Quarter: 2011Q2

REPORT INFORMATION
  Report Type: 
  Country: None (occurrence: None)
  Receive Date: 20110622
  Receipt Date: 20100628
  Transmission Date: 20111010
  Serious: Yes (Other)
  Sender: FDA-Public Use
  Company Number: US-MYLANLABS-2010S1010208

PATIENT
  Age: 72 Year
  Sex: Male

DRUGS (10)
  1. LOVAZA [Concomitant]
  2. LISINOPRIL [Concomitant]
  3. FAMOTIDINE [Concomitant]
  4. ALPRAZOLAM [Concomitant]
  5. CLOZAPINE [Suspect]
     Dates: end: 20100622
  6. ASPIRIN [Concomitant]
  7. SIMVASTATIN [Concomitant]
  8. GLIPIZIDE [Concomitant]
  9. CLOZAPINE [Suspect]
     Dates: end: 20100622
  10. CIPROFLOXACIN [Concomitant]

REACTIONS (2)
  - GRANULOCYTOPENIA [None]
  - LEUKOPENIA [None]
